FAERS Safety Report 17880088 (Version 2)
Quarter: 2020Q2

REPORT INFORMATION
  Report Type: Report from Study
  Country: CA (occurrence: CA)
  Receive Date: 20200610
  Receipt Date: 20200623
  Transmission Date: 20200714
  Serious: Yes (Hospitalization)
  Sender: FDA-Public Use
  Company Number: CA-AMGEN-CANSL2020012888

PATIENT
  Age: 72 Year
  Sex: Female

DRUGS (10)
  1. XGEVA [Suspect]
     Active Substance: DENOSUMAB
     Indication: BREAST CANCER
     Dosage: 120 MILLIGRAM, Q4WK
     Route: 065
     Dates: start: 20191218
  2. VENTOLIN HFA [Concomitant]
     Active Substance: ALBUTEROL SULFATE
  3. MAGNESIUM [Concomitant]
     Active Substance: MAGNESIUM
  4. ASPIRIN [ACETYLSALICYLIC ACID] [Concomitant]
     Active Substance: ASPIRIN
  5. POTASSIUM [Concomitant]
     Active Substance: POTASSIUM
  6. OXAZEPAM. [Concomitant]
     Active Substance: OXAZEPAM
  7. CALCIUM [Concomitant]
     Active Substance: CALCIUM
  8. XGEVA [Suspect]
     Active Substance: DENOSUMAB
     Indication: NEOPLASM
  9. METOPROLOL. [Concomitant]
     Active Substance: METOPROLOL
  10. SENOKOT [Concomitant]
     Active Substance: SENNOSIDES

REACTIONS (3)
  - Pain [Not Recovered/Not Resolved]
  - Bone pain [Not Recovered/Not Resolved]
  - Off label use [Unknown]

NARRATIVE: CASE EVENT DATE: 20191218
